FAERS Safety Report 6446297-8 (Version None)
Quarter: 2009Q4

REPORT INFORMATION
  Report Type: 
  Country: None (occurrence: None)
  Receive Date: 20091116
  Receipt Date: 20091106
  Transmission Date: 20100525
  Serious: Yes (Other)
  Sender: FDA-Public Use
  Company Number: 2008US000282

PATIENT
  Age: 29 Year
  Sex: Male
  Weight: 74 kg

DRUGS (3)
  1. PROTOPIC [Suspect]
     Indication: ECZEMA
     Dosage: 0.1 %, TOPICAL
     Route: 061
     Dates: start: 20030101, end: 20050901
  2. ELIDEL [Suspect]
     Indication: ECZEMA
     Dosage: TOPICAL
     Route: 061
     Dates: start: 20030101, end: 20050901
  3. ALLEGRA [Concomitant]

REACTIONS (6)
  - DENTAL PLAQUE [None]
  - GRANULOMA [None]
  - HODGKIN'S DISEASE NODULAR SCLEROSIS STAGE III [None]
  - INJURY [None]
  - OESOPHAGITIS [None]
  - TONGUE DISORDER [None]
